FAERS Safety Report 8293748-2 (Version None)
Quarter: 2012Q2

REPORT INFORMATION
  Report Type: 
  Country: None (occurrence: None)
  Receive Date: 20120413
  Receipt Date: 20120403
  Transmission Date: 20120825
  Serious: Yes (Disabling)
  Sender: FDA-Public Use
  Company Number: DE-1190531

PATIENT
  Age: 12 Year
  Sex: Male
  Weight: 38 kg

DRUGS (1)
  1. CYCLOPENTOLATE HCL [Suspect]
     Indication: CYCLOPLEGIC REFRACTION
     Dosage: (1 GTT BID OU OPHTHALMIC)
     Route: 047
     Dates: start: 20120111, end: 20120111

REACTIONS (16)
  - PSYCHOSOMATIC DISEASE [None]
  - DERMATITIS [None]
  - VISION BLURRED [None]
  - LACRIMAL DISORDER [None]
  - VISUAL ACUITY REDUCED [None]
  - ABDOMINAL PAIN UPPER [None]
  - EYE PAIN [None]
  - EYE IRRITATION [None]
  - VOMITING [None]
  - MYDRIASIS [None]
  - GLARE [None]
  - DERMATITIS ALLERGIC [None]
  - DACRYOSTENOSIS ACQUIRED [None]
  - PHOTOPHOBIA [None]
  - HEADACHE [None]
  - NAUSEA [None]
